FAERS Safety Report 9402364 (Version 2)
Quarter: 2013Q3

REPORT INFORMATION
  Report Type: Spontaneous
  Country: US (occurrence: US)
  Receive Date: 20130716
  Receipt Date: 20130812
  Transmission Date: 20140515
  Serious: Yes (Hospitalization)
  Sender: FDA-Public Use
  Company Number: US-PFIZER INC-2013206531

PATIENT
  Age: 43 Year
  Sex: Female
  Weight: 105 kg

DRUGS (11)
  1. LYRICA [Suspect]
     Indication: SCIATICA
     Dosage: 300 MG, 4X/DAY
     Route: 048
     Dates: start: 20070713
  2. LYRICA [Suspect]
     Indication: NEUROPATHY PERIPHERAL
     Dosage: 300 MG, 4X/DAY
     Dates: start: 2011
  3. LYRICA [Suspect]
     Indication: NEURALGIA
     Dosage: 300 MG, 2X/DAY (75MG CAPSULE- 4 CAPSULE TWICE A DAY)
  4. DURAGESIC-75 [Concomitant]
     Indication: PAIN
     Dosage: UNK, EVERY 3 DAYS
     Route: 062
  5. DICLOFENAC SODIUM [Concomitant]
     Dosage: 50 MG, 2X/DAY
     Route: 048
  6. PROMETHAZINE HYDROCHLORIDE [Concomitant]
     Dosage: 25 MG, 4X/DAY
     Route: 048
  7. ZOMIG [Concomitant]
     Dosage: 5 MG, 1X/DAY
     Route: 045
  8. ALBUTEROL SULFATE [Concomitant]
     Dosage: 108 (90 BASE) MCG/ACT, 2 PUFFS AS NEEDED EVERY 4 HRS
  9. ADVAIR DISKUS [Concomitant]
     Dosage: 250-50 MCG/DOSE, 2X/DAY (1 PUFF INHALATION)
  10. ALPRAZOLAM [Concomitant]
     Dosage: 0.5-1 (1 MG TABLET), 3X/DAY
     Route: 048
  11. VICODIN [Concomitant]
     Dosage: 1-2 (500MG-5MG), 4X/DAY
     Route: 048

REACTIONS (7)
  - Arthritis [Unknown]
  - Muscle spasms [Unknown]
  - Dyspepsia [Unknown]
  - Stress [Unknown]
  - Osteoarthritis [Unknown]
  - Osteoarthritis [Unknown]
  - Joint swelling [Unknown]
